FAERS Safety Report 8499029-6 (Version None)
Quarter: 2012Q3

REPORT INFORMATION
  Report Type: 
  Country: None (occurrence: None)
  Receive Date: 20120710
  Receipt Date: 20120703
  Transmission Date: 20120928
  Serious: No
  Sender: FDA-Public Use
  Company Number: US-BIOGENIDEC-2012BI023960

PATIENT
  Sex: Female

DRUGS (3)
  1. AVONEX [Suspect]
     Route: 030
     Dates: start: 20120622
  2. AVONEX [Suspect]
     Route: 030
     Dates: start: 20120524
  3. AVONEX [Suspect]
     Indication: MULTIPLE SCLEROSIS
     Route: 030
     Dates: start: 20090630, end: 20120215

REACTIONS (5)
  - INSOMNIA [None]
  - NIGHT SWEATS [None]
  - MIGRAINE [None]
  - HYPOTHYROIDISM [None]
  - CONFUSIONAL STATE [None]
